FAERS Safety Report 15130612 (Version 3)
Quarter: 2018Q3

REPORT INFORMATION
  Report Type: Spontaneous
  Country: FR (occurrence: FR)
  Receive Date: 20180711
  Receipt Date: 20180810
  Transmission Date: 20181010
  Serious: Yes (Hospitalization)
  Sender: FDA-Public Use
  Company Number: FR-JNJFOC-20180706287

PATIENT
  Age: 15 Year
  Sex: Male
  Weight: 110 kg

DRUGS (5)
  1. SERETIDE [Suspect]
     Active Substance: FLUTICASONE PROPIONATE\SALMETEROL XINAFOATE
     Indication: POISONING DELIBERATE
     Route: 055
     Dates: start: 20180606, end: 20180606
  2. PYOSTACINE [Suspect]
     Active Substance: PRISTINAMYCIN
     Indication: POISONING DELIBERATE
     Route: 048
     Dates: start: 20180606, end: 20180606
  3. DESLORATADINE. [Suspect]
     Active Substance: DESLORATADINE
     Indication: POISONING DELIBERATE
     Route: 048
     Dates: start: 20180606, end: 20180606
  4. RISPERIDONE. [Suspect]
     Active Substance: RISPERIDONE
     Indication: POISONING DELIBERATE
     Route: 048
     Dates: start: 20180606, end: 20180606
  5. OGASTORO [Suspect]
     Active Substance: LANSOPRAZOLE
     Indication: POISONING DELIBERATE
     Route: 048
     Dates: start: 20180606, end: 20180606

REACTIONS (6)
  - Off label use [Unknown]
  - Myoglobin blood increased [Recovered/Resolved]
  - Blood creatine phosphokinase increased [Recovered/Resolved]
  - Incorrect dose administered [Unknown]
  - Somnolence [Recovered/Resolved]
  - Product use in unapproved indication [Unknown]

NARRATIVE: CASE EVENT DATE: 20180606
